FAERS Safety Report 11014852 (Version 2)
Quarter: 2015Q2

REPORT INFORMATION
  Report Type: Spontaneous
  Country: US (occurrence: US)
  Receive Date: 20150412
  Receipt Date: 20150525
  Transmission Date: 20150821
  Serious: Yes (Other)
  Sender: FDA-Public Use
  Company Number: US-JNJFOC-20141210330

PATIENT
  Sex: Female
  Weight: 86.18 kg

DRUGS (8)
  1. ULTRAM ER [Suspect]
     Active Substance: TRAMADOL HYDROCHLORIDE
     Indication: FIBROMYALGIA
     Route: 048
     Dates: start: 2012, end: 201409
  2. MOBIC [Concomitant]
     Active Substance: MELOXICAM
     Indication: FIBROMYALGIA
     Route: 048
     Dates: start: 201312, end: 201406
  3. INDOMETHACIN. [Concomitant]
     Active Substance: INDOMETHACIN
     Indication: FIBROMYALGIA
     Route: 048
     Dates: start: 201406
  4. ULTRAM ER [Suspect]
     Active Substance: TRAMADOL HYDROCHLORIDE
     Indication: FIBROMYALGIA
     Route: 048
     Dates: start: 2009, end: 2012
  5. ULTRAM ER [Suspect]
     Active Substance: TRAMADOL HYDROCHLORIDE
     Indication: FIBROMYALGIA
     Route: 048
     Dates: start: 2005, end: 2009
  6. CYMBALTA [Concomitant]
     Active Substance: DULOXETINE HYDROCHLORIDE
     Indication: FIBROMYALGIA
     Route: 048
  7. MOBIC [Concomitant]
     Active Substance: MELOXICAM
     Indication: ANTIINFLAMMATORY THERAPY
     Route: 048
     Dates: start: 201312, end: 201406
  8. INDOMETHACIN. [Concomitant]
     Active Substance: INDOMETHACIN
     Indication: ANTIINFLAMMATORY THERAPY
     Route: 048
     Dates: start: 201406

REACTIONS (5)
  - Visual impairment [Recovered/Resolved]
  - Pain [Not Recovered/Not Resolved]
  - Pancreatitis [Recovered/Resolved]
  - Headache [Recovered/Resolved]
  - Cholelithiasis [Recovered/Resolved]

NARRATIVE: CASE EVENT DATE: 2009
